FAERS Safety Report 20299196 (Version 2)
Quarter: 2022Q1

REPORT INFORMATION
  Report Type: Spontaneous
  Country: US (occurrence: None)
  Receive Date: 20220105
  Receipt Date: 20220126
  Transmission Date: 20220424
  Serious: No
  Sender: FDA-Public Use
  Company Number: 2021A892638

PATIENT
  Sex: Male
  Weight: 71.7 kg

DRUGS (2)
  1. BYDUREON BCISE [Suspect]
     Active Substance: EXENATIDE
     Indication: Type 2 diabetes mellitus
     Route: 058
     Dates: start: 202106
  2. BYDUREON [Concomitant]
     Active Substance: EXENATIDE
     Indication: Type 2 diabetes mellitus
     Route: 058
     Dates: start: 2011, end: 202106

REACTIONS (4)
  - Dysphonia [Unknown]
  - Drug dose omission by device [Unknown]
  - Device leakage [Unknown]
  - Incorrect dose administered by device [Unknown]
